FAERS Safety Report 18405290 (Version 2)
Quarter: 2020Q4

REPORT INFORMATION
  Report Type: Report from Study
  Country: US (occurrence: US)
  Receive Date: 20201020
  Receipt Date: 20201104
  Transmission Date: 20210114
  Serious: Yes (Hospitalization)
  Sender: FDA-Public Use
  Company Number: US-PFIZER INC-2020404395

PATIENT
  Age: 54 Year
  Sex: Female
  Weight: 93 kg

DRUGS (7)
  1. LETAIRIS [Concomitant]
     Active Substance: AMBRISENTAN
     Dosage: UNK
  2. DILTIAZEM. [Concomitant]
     Active Substance: DILTIAZEM
     Dosage: UNK
  3. REVATIO [Suspect]
     Active Substance: SILDENAFIL CITRATE
     Dosage: UNK
  4. UPTRAVI [Suspect]
     Active Substance: SELEXIPAG
     Dosage: UNK
     Dates: end: 2020
  5. TYVASO [Suspect]
     Active Substance: TREPROSTINIL
     Indication: PULMONARY ARTERIAL HYPERTENSION
     Dosage: UNK
     Route: 055
     Dates: start: 20200203
  6. COUMADIN [Concomitant]
     Active Substance: WARFARIN SODIUM
     Dosage: UNK
  7. TYVASO [Suspect]
     Active Substance: TREPROSTINIL
     Dosage: 18-54 UG, QID (FOUR TIMES A DAY) (3-9 BREATHS)
     Route: 055

REACTIONS (11)
  - Headache [Unknown]
  - Pyrexia [Unknown]
  - COVID-19 [Unknown]
  - Blood pressure increased [Unknown]
  - Palpitations [Unknown]
  - Back pain [Unknown]
  - Pain [Unknown]
  - Decreased appetite [Unknown]
  - Nervousness [Unknown]
  - Insomnia [Unknown]
  - Loss of personal independence in daily activities [Unknown]

NARRATIVE: CASE EVENT DATE: 2020
